FAERS Safety Report 8288356-3 (Version None)
Quarter: 2012Q2

REPORT INFORMATION
  Report Type: 
  Country: None (occurrence: None)
  Receive Date: 20120416
  Receipt Date: 20120410
  Transmission Date: 20120825
  Serious: Yes (Death, Other)
  Sender: FDA-Public Use
  Company Number: US-PFIZER INC-2012090426

PATIENT
  Sex: Male

DRUGS (2)
  1. CHANTIX [Suspect]
  2. NEURONTIN [Suspect]

REACTIONS (1)
  - NEOPLASM MALIGNANT [None]
